FAERS Safety Report 24628510 (Version 1)
Quarter: 2024Q4

REPORT INFORMATION
  Report Type: Spontaneous
  Country: US (occurrence: US)
  Receive Date: 20241117
  Receipt Date: 20241117
  Transmission Date: 20250114
  Serious: Yes (Other)
  Sender: CSL BEHRING
  Company Number: US-BEH-2024185298

PATIENT
  Age: 35 Year
  Sex: Female

DRUGS (1)
  1. HUMAN RHO(D) IMMUNE GLOBULIN [Suspect]
     Active Substance: HUMAN RHO(D) IMMUNE GLOBULIN
     Indication: Alloimmunisation
     Route: 065

REACTIONS (3)
  - Drug ineffective [Unknown]
  - Foetal-maternal haemorrhage [Unknown]
  - Maternal exposure during pregnancy [Unknown]
